FAERS Safety Report 4268042-7 (Version None)
Quarter: 2004Q1

REPORT INFORMATION
  Report Type: 
  Country: None (occurrence: None)
  Receive Date: 20040109
  Receipt Date: 20040109
  Transmission Date: 20041129
  Serious: Yes (Other)
  Sender: FDA-Public Use
  Company Number: None

PATIENT
  Sex: Male
  Weight: 97.977 kg

DRUGS (10)
  1. EFAVIRENZ 600MG [Suspect]
     Indication: HIV INFECTION
     Dosage: 600MG HS ORAL
     Route: 048
     Dates: start: 20030402, end: 20031121
  2. MORPHINE SULF [Concomitant]
  3. ALBUTEROL [Concomitant]
  4. LORAZEPAM [Concomitant]
  5. TESTOSTERONE CYP [Concomitant]
  6. METHOCARBAMOL [Concomitant]
  7. POLYM/NEO/HC [Concomitant]
  8. SILDENAFIL CITRATE [Concomitant]
  9. LAMIVUDINE [Concomitant]
  10. ZIDOVUDINE [Concomitant]

REACTIONS (3)
  - FEELING ABNORMAL [None]
  - PRURITUS [None]
  - RASH [None]
